FAERS Safety Report 7021432-1 (Version None)
Quarter: 2010Q3

REPORT INFORMATION
  Report Type: 
  Country: None (occurrence: None)
  Receive Date: 20100929
  Receipt Date: 20100917
  Transmission Date: 20110219
  Serious: Yes (Hospitalization)
  Sender: FDA-Public Use
  Company Number: DE-SANOFI-AVENTIS-2010SA056039

PATIENT
  Age: 74 Year
  Sex: Female

DRUGS (14)
  1. OXALIPLATIN [Suspect]
     Route: 042
     Dates: start: 20100824, end: 20100824
  2. OXALIPLATIN [Suspect]
     Route: 042
     Dates: start: 20100907, end: 20100907
  3. BEVACIZUMAB [Suspect]
     Route: 042
     Dates: start: 20100824, end: 20100824
  4. BEVACIZUMAB [Suspect]
     Route: 042
     Dates: start: 20100907, end: 20100907
  5. FLUOROURACIL [Suspect]
     Route: 042
  6. FLUOROURACIL [Suspect]
     Route: 042
     Dates: start: 20100907, end: 20100907
  7. FOLINIC ACID [Suspect]
     Route: 042
     Dates: start: 20100824, end: 20100824
  8. FOLINIC ACID [Suspect]
     Route: 042
     Dates: start: 20100907, end: 20100907
  9. ACETYLSALICYLIC ACID [Concomitant]
  10. ENALAPRIL MALEATE [Concomitant]
  11. DECORTIN [Concomitant]
  12. EUTHYROX [Concomitant]
  13. BISOPROLOL [Concomitant]
  14. SIMVASTATIN [Concomitant]

REACTIONS (2)
  - HYPERSENSITIVITY [None]
  - TRANSIENT ISCHAEMIC ATTACK [None]
